FAERS Safety Report 5273497-5 (Version None)
Quarter: 2007Q1

REPORT INFORMATION
  Report Type: 
  Country: None (occurrence: None)
  Receive Date: 20070321
  Receipt Date: 20070321
  Transmission Date: 20070707
  Serious: Yes (Other)
  Sender: FDA-Public Use
  Company Number: None

PATIENT
  Age: 61 Year
  Sex: Male

DRUGS (2)
  1. ATENOLOL [Suspect]
     Indication: HEART RATE IRREGULAR
     Dosage: TAKE 1 TABLET DAILY
  2. . [Concomitant]

REACTIONS (3)
  - CARDIAC FLUTTER [None]
  - HEART RATE IRREGULAR [None]
  - PHARMACEUTICAL PRODUCT COMPLAINT [None]
